FAERS Safety Report 12862166 (Version 1)
Quarter: 2016Q4

REPORT INFORMATION
  Report Type: Spontaneous
  Country: US (occurrence: US)
  Receive Date: 20161018
  Receipt Date: 20161018
  Transmission Date: 20170207
  Serious: Yes (Other)
  Sender: FDA-Public Use
  Company Number: None

PATIENT
  Age: 5 Month
  Sex: Male
  Weight: 87.75 kg

DRUGS (9)
  1. NASACORT ALLERGY 24HR [Suspect]
     Active Substance: TRIAMCINOLONE ACETONIDE
     Indication: PARANASAL SINUS DISCOMFORT
     Dosage: OTHER STRENGTH:MCG;QUANTITY:2 SPRAY(S);OTHER ROUTE:INTO EACH NOSTRIL?
     Route: 045
     Dates: start: 20160515, end: 20161011
  2. DULOXETINE. [Concomitant]
     Active Substance: DULOXETINE
  3. COSOPT [Concomitant]
     Active Substance: DORZOLAMIDE HYDROCHLORIDE\TIMOLOL MALEATE
  4. SODIUM [Concomitant]
     Active Substance: SODIUM
  5. VITAMIN D3 [Concomitant]
     Active Substance: CHOLECALCIFEROL
  6. CETIRIZINE [Concomitant]
     Active Substance: CETIRIZINE HYDROCHLORIDE
  7. MELATONIN [Concomitant]
     Active Substance: MELATONIN
  8. NAPROXEN. [Concomitant]
     Active Substance: NAPROXEN
  9. NASACORT ALLERGY 24HR [Suspect]
     Active Substance: TRIAMCINOLONE ACETONIDE
     Indication: DIZZINESS
     Dosage: OTHER STRENGTH:MCG;QUANTITY:2 SPRAY(S);OTHER ROUTE:INTO EACH NOSTRIL?
     Route: 045
     Dates: start: 20160515, end: 20161011

REACTIONS (1)
  - Intraocular pressure increased [None]

NARRATIVE: CASE EVENT DATE: 20161010
